FAERS Safety Report 13391261 (Version 1)
Quarter: 2017Q1

REPORT INFORMATION
  Report Type: Spontaneous
  Country: ES (occurrence: ES)
  Receive Date: 20170331
  Receipt Date: 20170331
  Transmission Date: 20170429
  Serious: Yes (Other)
  Sender: FDA-Public Use
  Company Number: ES-BAYER-2017-054737

PATIENT
  Age: 50 Year
  Sex: Male

DRUGS (4)
  1. CLOPIDOGREL [Interacting]
     Active Substance: CLOPIDOGREL BISULFATE
  2. ACETYLSALICYLIC ACID (} 100 MG) [Suspect]
     Active Substance: ASPIRIN
  3. URAPIDIL [Concomitant]
     Active Substance: URAPIDIL
  4. ENOXAPARIN [Interacting]
     Active Substance: ENOXAPARIN

REACTIONS (6)
  - Myocardial infarction [None]
  - Labelled drug-drug interaction medication error [None]
  - Adrenal haemorrhage [None]
  - Drug administration error [None]
  - Phaeochromocytoma [None]
  - Hypertensive emergency [None]
